FAERS Safety Report 15670618 (Version 1)
Quarter: 2018Q4

REPORT INFORMATION
  Report Type: Spontaneous
  Country: BR (occurrence: BR)
  Receive Date: 20181129
  Receipt Date: 20181129
  Transmission Date: 20190205
  Serious: Yes (Other)
  Sender: FDA-Public Use
  Company Number: BR-ROCHE-2219702

PATIENT
  Age: 78 Year
  Sex: Female

DRUGS (2)
  1. VALIUM [Suspect]
     Active Substance: DIAZEPAM
     Indication: INSOMNIA
     Route: 065
  2. VALIUM [Suspect]
     Active Substance: DIAZEPAM
     Indication: MUSCULOSKELETAL STIFFNESS

REACTIONS (3)
  - Intentional product use issue [Unknown]
  - Lumbar vertebral fracture [Unknown]
  - Off label use [Unknown]

NARRATIVE: CASE EVENT DATE: 2002
